FAERS Safety Report 25790579 (Version 1)
Quarter: 2025Q3

REPORT INFORMATION
  Report Type: Spontaneous
  Country: EU (occurrence: EU)
  Receive Date: 20250911
  Receipt Date: 20250911
  Transmission Date: 20251021
  Serious: Yes (Death, Hospitalization, Other)
  Sender: BRISTOL-MYERS SQUIBB COMPANY
  Company Number: None

PATIENT
  Age: 60 Year
  Sex: Male
  Weight: 80 kg

DRUGS (3)
  1. OPDIVO [Suspect]
     Active Substance: NIVOLUMAB
     Indication: Clear cell renal cell carcinoma
     Dosage: 240 MG EVERY 2 WEEKS? 1 VIAL OF 10 ML
     Dates: start: 20250722, end: 20250805
  2. OPDIVO [Suspect]
     Active Substance: NIVOLUMAB
     Dosage: 240 MG EVERY 2 WEEKS? 1 VIAL OF 10 ML
     Dates: start: 20250722, end: 20250805
  3. OPDIVO [Suspect]
     Active Substance: NIVOLUMAB
     Dosage: 240 MG EVERY 2 WEEKS? 1 VIAL OF 10 ML
     Dates: start: 20250722, end: 20250805

REACTIONS (2)
  - Myocarditis [Fatal]
  - Ocular myasthenia [Fatal]

NARRATIVE: CASE EVENT DATE: 20250813
